FAERS Safety Report 16491744 (Version 1)
Quarter: 2019Q2

REPORT INFORMATION
  Report Type: Spontaneous
  Country: GB (occurrence: GB)
  Receive Date: 20190628
  Receipt Date: 20190628
  Transmission Date: 20190711
  Serious: Yes (Death)
  Sender: FDA-Public Use
  Company Number: GB-TEVA-2019-GB-1070205

PATIENT
  Age: 68 Year
  Sex: Female
  Weight: 60 kg

DRUGS (6)
  1. ZOLEDRONIC ACID [Suspect]
     Active Substance: ZOLEDRONIC ACID
     Indication: OSTEOPOROSIS
     Dosage: 5 MILLIGRAM DAILY; 5MG/100ML?SECOND OF THREE PLANNED DOSES
     Route: 042
     Dates: start: 20190516, end: 20190516
  2. PARACETAMOL [Concomitant]
     Active Substance: ACETAMINOPHEN
  3. SERTRALINE [Concomitant]
     Active Substance: SERTRALINE HYDROCHLORIDE
  4. ATORVASTATIN [Concomitant]
     Active Substance: ATORVASTATIN
  5. ADCAL-D3 [Concomitant]
     Active Substance: CALCIUM CARBONATE\CHOLECALCIFEROL
  6. TAMSULOSIN [Concomitant]
     Active Substance: TAMSULOSIN

REACTIONS (11)
  - Somnolence [Fatal]
  - Urinary tract obstruction [Fatal]
  - Flank pain [Fatal]
  - Sepsis [Fatal]
  - Pyrexia [Fatal]
  - Tachycardia [Fatal]
  - Vomiting [Fatal]
  - Abdominal pain lower [Fatal]
  - Hydronephrosis [Fatal]
  - Pallor [Fatal]
  - Nephrolithiasis [Fatal]

NARRATIVE: CASE EVENT DATE: 20190517
